FAERS Safety Report 16065289 (Version 1)
Quarter: 2019Q1

REPORT INFORMATION
  Report Type: Spontaneous
  Country: AU (occurrence: AU)
  Receive Date: 20190313
  Receipt Date: 20190313
  Transmission Date: 20190418
  Serious: Yes (Other)
  Sender: FDA-Public Use
  Company Number: AU-STRIDES ARCOLAB LIMITED-2019SP002173

PATIENT
  Age: 5 Day
  Sex: Male
  Weight: 3 kg

DRUGS (2)
  1. COLECALCIFEROL [Suspect]
     Active Substance: CHOLECALCIFEROL
     Indication: PRODUCT USED FOR UNKNOWN INDICATION
     Dosage: 250 IU DAILY THROUGHOUT PREGNANCY
     Route: 064
  2. ERGOCALCIFEROL. [Suspect]
     Active Substance: ERGOCALCIFEROL
     Indication: PRODUCT USED FOR UNKNOWN INDICATION
     Dosage: 50000 UNK, SINGLE
     Route: 048

REACTIONS (8)
  - Poor feeding infant [Recovered/Resolved]
  - Hypercalciuria [Recovered/Resolved]
  - Hydronephrosis [Unknown]
  - Lethargy [Recovered/Resolved]
  - Nephrocalcinosis [Recovered/Resolved]
  - Hydroureter [Unknown]
  - Foetal exposure during pregnancy [Unknown]
  - Hypercalcaemia [Recovered/Resolved]
